FAERS Safety Report 14837580 (Version 1)
Quarter: 2018Q2

REPORT INFORMATION
  Report Type: Spontaneous
  Country: MY (occurrence: MY)
  Receive Date: 20180502
  Receipt Date: 20180502
  Transmission Date: 20180711
  Serious: Yes (Life-Threatening, Hospitalization)
  Sender: FDA-Public Use
  Company Number: MY-ASTRAZENECA-2018SE55910

PATIENT
  Age: 74 Year
  Sex: Male
  Weight: 87.5 kg

DRUGS (1)
  1. SYMBICORT [Suspect]
     Active Substance: BUDESONIDE\FORMOTEROL FUMARATE DIHYDRATE
     Dosage: 160/4.5MCG, UNKNOWN UNKNOWN
     Route: 055

REACTIONS (2)
  - Bronchospasm [Recovered/Resolved]
  - Cyanosis [Recovered/Resolved]
